FAERS Safety Report 24556067 (Version 3)
Quarter: 2024Q4

REPORT INFORMATION
  Report Type: Spontaneous
  Country: DE (occurrence: DE)
  Receive Date: 20241028
  Receipt Date: 20241104
  Transmission Date: 20250115
  Serious: Yes (Other)
  Sender: NOVARTIS
  Company Number: DE-002147023-NVSC2024DE208708

PATIENT
  Age: 38 Year
  Sex: Female

DRUGS (1)
  1. KESIMPTA [Suspect]
     Active Substance: OFATUMUMAB
     Indication: Multiple sclerosis
     Dosage: 20 MG
     Route: 065
     Dates: start: 2023

REACTIONS (8)
  - Neutropenia [Recovering/Resolving]
  - White blood cell count [Unknown]
  - Platelet count [Unknown]
  - Lymphocyte count [Unknown]
  - Monocyte count [Unknown]
  - Basophil count [Unknown]
  - Mean cell haemoglobin [Unknown]
  - Lymphocyte morphology abnormal [Unknown]

NARRATIVE: CASE EVENT DATE: 20240816
